FAERS Safety Report 10513234 (Version 6)
Quarter: 2015Q1

REPORT INFORMATION
  Report Type: Spontaneous
  Country: PT (occurrence: PT)
  Receive Date: 20141013
  Receipt Date: 20150113
  Transmission Date: 20150720
  Serious: Yes (Hospitalization, Disabling)
  Sender: FDA-Public Use
  Company Number: PT-ROCHE-1470075

PATIENT
  Age: 76 Year
  Sex: Female

DRUGS (2)
  1. LUCENTIS [Suspect]
     Active Substance: RANIBIZUMAB
     Route: 050
     Dates: start: 20140919
  2. LUCENTIS [Suspect]
     Active Substance: RANIBIZUMAB
     Indication: AGE-RELATED MACULAR DEGENERATION
     Dosage: 11/SEP/2014: RECIVED LAST INJECTION
     Route: 050
     Dates: start: 2011

REACTIONS (5)
  - Blindness [Recovered/Resolved]
  - Ocular hyperaemia [Recovered/Resolved]
  - Endophthalmitis [Recovered/Resolved]
  - Leukocytosis [Unknown]
  - Eye pain [Recovered/Resolved]

NARRATIVE: CASE EVENT DATE: 20140913
